FAERS Safety Report 17018396 (Version 13)
Quarter: 2020Q2

REPORT INFORMATION
  Report Type: Spontaneous
  Country: CA (occurrence: CA)
  Receive Date: 20191111
  Receipt Date: 20200413
  Transmission Date: 20200713
  Serious: Yes (Death, Hospitalization, Other)
  Sender: FDA-Public Use
  Company Number: CA-CELLTRION INC.-2019CA022194

PATIENT

DRUGS (22)
  1. INFLECTRA [Suspect]
     Active Substance: INFLIXIMAB-DYYB
     Indication: COLITIS ULCERATIVE
     Dosage: 265 MG, 0, 2, 6, THEN EVERY 8 WEEKS
     Route: 042
     Dates: start: 20190531
  2. INFLECTRA [Suspect]
     Active Substance: INFLIXIMAB-DYYB
     Dosage: 265 MG 0, 2, 6, THEN EVERY 8 WEEKS
     Route: 042
     Dates: start: 20190709
  3. DIFLUCAN [Concomitant]
     Active Substance: FLUCONAZOLE
     Dosage: 100 MG, 1X/DAY
     Route: 048
  4. PANTOPRAZOLE [Concomitant]
     Active Substance: PANTOPRAZOLE
     Dosage: 40 MG, 1X/DAY
     Route: 048
  5. SLEEP AID [Concomitant]
     Dosage: UNK, 1X/DAY (SLEEP HOUR)
     Route: 048
  6. INFLECTRA [Suspect]
     Active Substance: INFLIXIMAB-DYYB
     Dosage: 265 MG 0, 2, 6, THEN EVERY 8 WEEKS
     Route: 042
     Dates: start: 20190903
  7. CODEINE PHOSPHATE [Concomitant]
     Active Substance: CODEINE PHOSPHATE
     Dosage: 15 MG, 2X/DAY (AS NEEDED)
     Route: 048
  8. MEZAVANT [Concomitant]
     Active Substance: MESALAMINE
     Dosage: 1.2 G (4 TABS), 1X/DAY
     Route: 048
     Dates: start: 2009
  9. IRON [Concomitant]
     Active Substance: IRON
     Dosage: UNK
  10. LORAZEPAM. [Concomitant]
     Active Substance: LORAZEPAM
     Dosage: 1 MG, 1X/DAY (AS NEEDED)
     Route: 048
  11. IPRATROPIUM BROMIDE. [Concomitant]
     Active Substance: IPRATROPIUM BROMIDE
     Dosage: UNK
     Route: 065
  12. SPIRIVA [Concomitant]
     Active Substance: TIOTROPIUM BROMIDE MONOHYDRATE
     Dosage: UNK
     Route: 055
  13. CALCIUM [Concomitant]
     Active Substance: CALCIUM
     Dosage: 650 MG, UNK
     Route: 048
  14. INFLECTRA [Suspect]
     Active Substance: INFLIXIMAB-DYYB
     Dosage: 300 MG, (EVERY 8 WEEKS)
     Route: 042
     Dates: start: 20200114
  15. HYDROCODONE [Concomitant]
     Active Substance: HYDROCODONE
     Dosage: 5 ML, 3X/DAY
     Route: 065
  16. INFLECTRA [Suspect]
     Active Substance: INFLIXIMAB-DYYB
     Dosage: 265 MG 0, 2, 6, THEN EVERY 8 WEEKS
     Route: 042
     Dates: start: 20190611
  17. VENTOLIN [Concomitant]
     Active Substance: ALBUTEROL SULFATE
     Dosage: UNK
     Route: 055
  18. RIVAROXABAN [Concomitant]
     Active Substance: RIVAROXABAN
     Dosage: 20 MG, 1X/DAY (SLEEP HOUR)
     Route: 048
  19. INFLECTRA [Suspect]
     Active Substance: INFLIXIMAB-DYYB
     Dosage: 300 MG, (EVERY 8 WEEKS)
     Route: 042
     Dates: start: 20191114
  20. VIT D [Concomitant]
     Active Substance: VITAMIN D NOS
     Dosage: 1000 IU, UNK
     Route: 048
  21. TYLENOL [Concomitant]
     Active Substance: ACETAMINOPHEN
     Dosage: 500 MG, DAILY
     Route: 048
  22. SALBUTAMOL [Concomitant]
     Active Substance: ALBUTEROL
     Dosage: UNK
     Route: 065

REACTIONS (19)
  - Disease recurrence [Unknown]
  - Pyrexia [Unknown]
  - Weight increased [Unknown]
  - Paraesthesia [Unknown]
  - Pruritus [Unknown]
  - Death [Fatal]
  - Inappropriate schedule of product administration [Unknown]
  - Colitis [Unknown]
  - Injection site discomfort [Unknown]
  - Drug level below therapeutic [Unknown]
  - Dyspnoea [Unknown]
  - Lung disorder [Unknown]
  - Blood pressure fluctuation [Unknown]
  - Pneumonia [Unknown]
  - Off label use [Unknown]
  - Intentional product use issue [Unknown]
  - Haemorrhage [Recovered/Resolved]
  - Hypoaesthesia [Unknown]
  - Faeces discoloured [Unknown]

NARRATIVE: CASE EVENT DATE: 2019
